FAERS Safety Report 4346817-3 (Version None)
Quarter: 2004Q2

REPORT INFORMATION
  Report Type: 
  Country: None (occurrence: None)
  Receive Date: 20040426
  Receipt Date: 20040413
  Transmission Date: 20050107
  Serious: Yes (Hospitalization)
  Sender: FDA-Public Use
  Company Number: FR-MERCK-0404FRA00039

PATIENT
  Age: 64 Year
  Sex: Male

DRUGS (3)
  1. CIPROFLOXACIN HYDROCHLORIDE [Suspect]
     Indication: ENTEROBACTER INFECTION
     Route: 048
     Dates: start: 20040228, end: 20040327
  2. PRISTINAMYCIN [Suspect]
     Indication: ENTEROBACTER INFECTION
     Route: 048
     Dates: start: 20040325, end: 20040327
  3. ZOCOR [Suspect]
     Route: 048
     Dates: start: 20040221, end: 20040329

REACTIONS (5)
  - CHEILITIS [None]
  - CONJUNCTIVITIS [None]
  - DERMATITIS BULLOUS [None]
  - OEDEMA PERIPHERAL [None]
  - SKIN DISORDER [None]
